FAERS Safety Report 5034841-7 (Version None)
Quarter: 2006Q2

REPORT INFORMATION
  Report Type: 
  Country: None (occurrence: None)
  Receive Date: 20060519
  Receipt Date: 20060407
  Transmission Date: 20061013
  Serious: No
  Sender: FDA-Public Use
  Company Number: TPA2006A00626

PATIENT
  Age: 67 Year
  Sex: Female
  Weight: 56.246 kg

DRUGS (7)
  1. ROZEREM [Suspect]
     Indication: INSOMNIA
     Dosage: 8 MG, QHS, PER ORAL
     Route: 048
     Dates: start: 20060403
  2. CRESTOR [Concomitant]
  3. DIOVAN (VALSARTAN) (160 MILLIGRAM) [Concomitant]
  4. NEXIUM (ESOMEPRAZOLE MAGNESIUM) (40 MILLIGRAM) [Concomitant]
  5. CENTRUM SILVER (ASCORBIC ACID, TOCOPHERYL ACETATE, RETINL, ZINC, CALCI [Concomitant]
  6. BONIVA (IBANDRONATE SODIUM) (150 MILLIGRAM) [Concomitant]
  7. CALTRATE PLUS D (CALCIUM CARBONATE, VITAMIN D NOS) (600 MILLIGRAM) [Concomitant]

REACTIONS (1)
  - DRUG INEFFECTIVE [None]
